FAERS Safety Report 20298187 (Version 2)
Quarter: 2022Q1

REPORT INFORMATION
  Report Type: Spontaneous
  Country: US (occurrence: US)
  Receive Date: 20220105
  Receipt Date: 20220106
  Transmission Date: 20220423
  Serious: Yes (Other)
  Sender: FDA-Public Use
  Company Number: US-JNJFOC-20211020186

PATIENT
  Sex: Female

DRUGS (3)
  1. INVEGA SUSTENNA [Suspect]
     Active Substance: PALIPERIDONE PALMITATE
     Indication: Product used for unknown indication
     Route: 030
     Dates: start: 2019, end: 202011
  2. INVEGA SUSTENNA [Suspect]
     Active Substance: PALIPERIDONE PALMITATE
  3. INVEGA SUSTENNA [Suspect]
     Active Substance: PALIPERIDONE PALMITATE

REACTIONS (14)
  - Suicidal ideation [Unknown]
  - Hallucination [Unknown]
  - Cardiac flutter [Unknown]
  - Delusion [Unknown]
  - Behaviour disorder [Not Recovered/Not Resolved]
  - Decreased interest [Unknown]
  - Visual impairment [Unknown]
  - Cardiac disorder [Unknown]
  - Paranoia [Unknown]
  - Migraine [Unknown]
  - Emotional disorder [Unknown]
  - Injection site pain [Unknown]
  - Menstruation irregular [Unknown]
  - Sleep disorder [Unknown]
